FAERS Safety Report 24299022 (Version 3)
Quarter: 2024Q4

REPORT INFORMATION
  Report Type: Spontaneous
  Country: HU (occurrence: AU)
  Receive Date: 20240909
  Receipt Date: 20241024
  Transmission Date: 20250115
  Serious: Yes (Other)
  Sender: SUNOVION
  Company Number: AU-RICHTER-2024-GR-009131

PATIENT

DRUGS (2)
  1. ESTRADIOL\NORETHINDRONE ACETATE\RELUGOLIX [Suspect]
     Active Substance: ESTRADIOL\NORETHINDRONE ACETATE\RELUGOLIX
     Indication: Endometriosis
     Route: 065
  2. Endep 25 mg [Concomitant]
     Indication: Product used for unknown indication
     Dosage: 25 MG
     Route: 065
     Dates: start: 2018

REACTIONS (2)
  - Road traffic accident [Recovered/Resolved]
  - Hypertension [Recovered/Resolved]
